FAERS Safety Report 9096110 (Version 5)
Quarter: 2015Q2

REPORT INFORMATION
  Report Type: Spontaneous
  Country: US (occurrence: US)
  Receive Date: 20130125
  Receipt Date: 20150409
  Transmission Date: 20150821
  Serious: Yes (Hospitalization, Other)
  Sender: FDA-Public Use
  Company Number: US-PFIZER INC-2013016150

PATIENT
  Age: 70 Year
  Sex: Female
  Weight: 77 kg

DRUGS (14)
  1. PREDNISONE. [Concomitant]
     Active Substance: PREDNISONE
     Indication: RHEUMATOID ARTHRITIS
     Dosage: 5 MG, 2X/DAY
  2. ARAVA [Concomitant]
     Active Substance: LEFLUNOMIDE
     Dosage: 20 MG, 1X/DAY
  3. HYDROCHLOROTHIAZIDE. [Concomitant]
     Active Substance: HYDROCHLOROTHIAZIDE
     Dosage: UNK, 1X/DAY
  4. ZYVOX [Suspect]
     Active Substance: LINEZOLID
     Indication: OSTEOMYELITIS
     Dosage: 600 MG, BID
     Route: 048
     Dates: start: 20121121, end: 20121217
  5. METHOTREXATE SODIUM. [Concomitant]
     Active Substance: METHOTREXATE SODIUM
     Dosage: 2.5 MG (FREQUENCY UNKNOWN)
  6. SIMVASTATIN. [Concomitant]
     Active Substance: SIMVASTATIN
     Dosage: 20 MG, 1X/DAY, BEDTIME
  7. TOPROL XL [Concomitant]
     Active Substance: METOPROLOL SUCCINATE
     Dosage: 50 MG, 1/2 TWICE DAILY
  8. VICODIN [Concomitant]
     Active Substance: ACETAMINOPHEN\HYDROCODONE BITARTRATE
     Dosage: 500 MG-5 MG, AS NEEDED
  9. MELOXICAM. [Concomitant]
     Active Substance: MELOXICAM
     Indication: ARTHRITIS
     Dosage: UNK
  10. CALCIUM-VITAMIN D [Concomitant]
     Dosage: UNK UNK, 2X/DAY
  11. METHOTREXATE [Concomitant]
     Active Substance: METHOTREXATE
     Indication: ARTHRITIS
     Dosage: 6 TABLETS A WEEK, ALL ON ONE DAY
  12. GABAPENTIN. [Concomitant]
     Active Substance: GABAPENTIN
     Dosage: 300 MG, 3X/DAY
  13. POTASSIUM [Concomitant]
     Active Substance: POTASSIUM
     Dosage: TWICE DAILY
  14. RECLAST [Concomitant]
     Active Substance: ZOLEDRONIC ACID

REACTIONS (11)
  - Asthenia [Recovered/Resolved]
  - Skin ulcer [Unknown]
  - Thrombocytopenia [Recovered/Resolved]
  - Arrhythmia [Unknown]
  - Syncope [Recovered/Resolved]
  - Drug hypersensitivity [Unknown]
  - Loss of consciousness [Unknown]
  - Full blood count decreased [Recovered/Resolved]
  - Red blood cell count abnormal [Recovered/Resolved]
  - White blood cell count abnormal [Recovered/Resolved]
  - Pain in extremity [Unknown]

NARRATIVE: CASE EVENT DATE: 20121217
